FAERS Safety Report 9586325 (Version 2)
Quarter: 2013Q4

REPORT INFORMATION
  Report Type: Report from Study
  Country: CA (occurrence: CA)
  Receive Date: 20131003
  Receipt Date: 20131003
  Transmission Date: 20140711
  Serious: Yes (Hospitalization)
  Sender: FDA-Public Use
  Company Number: PHHY2013CA080118

PATIENT
  Sex: Male

DRUGS (1)
  1. SANDOSTATIN LAR [Suspect]
     Indication: DIARRHOEA
     Dosage: 60 MG, EVERY 4 WEEKS
     Route: 030
     Dates: start: 20130629

REACTIONS (2)
  - Diarrhoea [Unknown]
  - Dehydration [Unknown]
